FAERS Safety Report 16322009 (Version 1)
Quarter: 2019Q2

REPORT INFORMATION
  Report Type: Spontaneous
  Country: CA (occurrence: CA)
  Receive Date: 20190516
  Receipt Date: 20190516
  Transmission Date: 20190711
  Serious: Yes (Life-Threatening, Hospitalization, Other)
  Sender: FDA-Public Use
  Company Number: CA-FERRINGPH-2019FE01439

PATIENT

DRUGS (2)
  1. PRENATAL VITAMINS                  /02014401/ [Concomitant]
     Active Substance: VITAMINS
     Indication: PRODUCT USED FOR UNKNOWN INDICATION
     Route: 065
  2. CERVIDIL [Suspect]
     Active Substance: DINOPROSTONE
     Indication: LABOUR INDUCTION
     Dosage: 10 MG, ONCE/SINGLE
     Route: 067
     Dates: start: 20190207, end: 20190208

REACTIONS (4)
  - Product administration error [Unknown]
  - Incorrect product administration duration [Recovered/Resolved]
  - Uterine hyperstimulation [Recovered/Resolved]
  - Meconium stain [Unknown]

NARRATIVE: CASE EVENT DATE: 20190207
